FAERS Safety Report 9902160 (Version 1)
Quarter: 2014Q1

REPORT INFORMATION
  Report Type: Spontaneous
  Country: US (occurrence: US)
  Receive Date: 20140217
  Receipt Date: 20140217
  Transmission Date: 20141002
  Serious: Yes (Other)
  Sender: FDA-Public Use
  Company Number: US-JNJFOC-20140203939

PATIENT
  Sex: Female
  Weight: 108.86 kg

DRUGS (20)
  1. SANDOZ FENTANYL [Suspect]
     Indication: PAIN
     Route: 062
     Dates: start: 201309
  2. SANDOZ FENTANYL [Suspect]
     Indication: PAIN
     Route: 062
     Dates: start: 2013, end: 201309
  3. SIMVASTATIN [Concomitant]
     Indication: PRODUCT USED FOR UNKNOWN INDICATION
     Route: 048
  4. OXYCODONE/ACETAMINOPHEN [Concomitant]
     Indication: ARTHRALGIA
     Dosage: 22.5-975 MG??325 MG
     Route: 048
  5. OXYCODONE/ACETAMINOPHEN [Concomitant]
     Indication: BACK PAIN
     Dosage: 22.5-975 MG??325 MG
     Route: 048
  6. OXYCODONE/ACETAMINOPHEN [Concomitant]
     Indication: ARTHRALGIA
     Dosage: 22.5-975 MG??325 MG
     Route: 048
  7. VENLAFAXINE [Concomitant]
     Indication: NERVOUSNESS
     Route: 048
  8. VENLAFAXINE [Concomitant]
     Indication: ANXIETY
     Route: 048
  9. ROPINIROLE [Concomitant]
     Indication: PRODUCT USED FOR UNKNOWN INDICATION
     Route: 048
  10. CARBIDOPA-LEVODOPA [Concomitant]
     Indication: TREMOR
     Route: 048
  11. POTASSIUM [Concomitant]
     Indication: BLOOD POTASSIUM DECREASED
     Route: 048
  12. GABAPENTIN [Concomitant]
     Indication: BONE PAIN
     Route: 048
  13. ALLOPURINOL [Concomitant]
     Indication: PRODUCT USED FOR UNKNOWN INDICATION
     Route: 048
  14. OXYBUTYNIN [Concomitant]
     Indication: UNEVALUABLE EVENT
     Route: 048
  15. OMEPRAZOLE [Concomitant]
     Indication: PRODUCT USED FOR UNKNOWN INDICATION
     Route: 048
  16. FUROSEMIDE [Concomitant]
     Indication: FLUID RETENTION
     Route: 048
  17. ATENOLOL [Concomitant]
     Indication: HYPERTENSION
     Route: 048
  18. CLONAZEPAM [Concomitant]
     Indication: RESTLESS LEGS SYNDROME
     Route: 048
  19. IBANDRONATE [Concomitant]
     Indication: BONE DISORDER
     Route: 048
  20. B12 SHOT [Concomitant]
     Indication: PRODUCT USED FOR UNKNOWN INDICATION
     Route: 065

REACTIONS (4)
  - Loss of consciousness [Recovered/Resolved]
  - Product adhesion issue [Unknown]
  - Pain [Recovered/Resolved]
  - Wrong technique in drug usage process [Recovered/Resolved]
